FAERS Safety Report 9409507 (Version 4)
Quarter: 2013Q4

REPORT INFORMATION
  Report Type: Report from Study
  Country: US (occurrence: US)
  Receive Date: 20130719
  Receipt Date: 20131011
  Transmission Date: 20140711
  Serious: Yes (Life-Threatening, Hospitalization)
  Sender: FDA-Public Use
  Company Number: US-PFIZER INC-2013206601

PATIENT
  Age: 58 Year
  Sex: Female
  Weight: 53.51 kg

DRUGS (16)
  1. IRINOTECAN HCL [Suspect]
     Indication: COLORECTAL CANCER METASTATIC
     Dosage: 180 MG/M2, DAY 1 EVERY 14 DAYS
     Route: 042
     Dates: start: 20130612, end: 20130624
  2. FLUOROURACIL [Suspect]
     Indication: COLORECTAL CANCER METASTATIC
     Dosage: 400 MG/M2 IV BOLUS, ON DAY 1 EVERY 14 DAYS
     Route: 040
     Dates: start: 20130612, end: 20130624
  3. FLUOROURACIL [Suspect]
     Dosage: 2400 MG/M2, ON DAYS 1 AND 2 EVERY 14 DAYS
     Route: 042
     Dates: end: 20130624
  4. FOLINIC ACID [Suspect]
     Indication: COLORECTAL CANCER METASTATIC
     Dosage: 400 MG/M2, DAY 1 EVERY 14 DAYS
     Route: 042
     Dates: start: 20130612, end: 20130624
  5. BLINDED THERAPY [Suspect]
     Indication: COLORECTAL CANCER METASTATIC
     Dosage: UNK
     Dates: start: 20130612, end: 20130624
  6. BENADRYL [Concomitant]
     Dosage: UNK
     Dates: start: 20130612
  7. DEXAMETHASONE [Concomitant]
     Dosage: UNK
     Dates: start: 20130612
  8. MIRALAX [Concomitant]
     Dosage: UNK
     Dates: start: 20130225
  9. PROMETHAZINE [Concomitant]
     Dosage: UNK
     Dates: start: 20130225
  10. ONDANSETRON [Concomitant]
     Dosage: UNK
  11. MORPHINE [Concomitant]
     Dosage: UNK
     Dates: start: 20130304
  12. DILAUDID [Concomitant]
     Dosage: UNK
     Dates: start: 20130304
  13. MEGESTROL ACETATE [Concomitant]
     Dosage: UNK
  14. FERROUS SULPHATE [Concomitant]
     Dosage: UNK
  15. MAGIC MOUTHWASH [Concomitant]
     Indication: STOMATITIS
  16. MAGIC MOUTHWASH [Concomitant]
     Indication: DRY MOUTH

REACTIONS (5)
  - Pulmonary embolism [Recovered/Resolved]
  - Laryngeal inflammation [Recovered/Resolved]
  - Mucosal inflammation [Recovered/Resolved]
  - Neutropenia [Recovered/Resolved]
  - Dehydration [Recovered/Resolved]
